FAERS Safety Report 10453323 (Version 3)
Quarter: 2015Q1

REPORT INFORMATION
  Report Type: Spontaneous
  Country: US (occurrence: US)
  Receive Date: 20140915
  Receipt Date: 20150219
  Transmission Date: 20150720
  Serious: Yes (Other)
  Sender: FDA-Public Use
  Company Number: US-BAYER-2014-135810

PATIENT
  Age: 50 Year
  Sex: Female
  Weight: 62 kg

DRUGS (6)
  1. CYPROHEPTADINE. [Concomitant]
     Active Substance: CYPROHEPTADINE
     Indication: HYPERSENSITIVITY
     Dosage: UNK UNK, QD
     Dates: start: 20150112
  2. CALCIUM [Concomitant]
     Active Substance: CALCIUM
     Dosage: UNK UNK, QD
     Dates: start: 20140728
  3. MAGNEVIST [Suspect]
     Active Substance: GADOPENTETATE DIMEGLUMINE
     Indication: NUCLEAR MAGNETIC RESONANCE IMAGING BRAIN
     Dosage: 20 ML, ONCE
     Route: 042
     Dates: start: 20140728, end: 20140728
  4. MAGENSIUM VITAFIT [Concomitant]
  5. POTASSIUM [Concomitant]
     Active Substance: POTASSIUM
     Indication: HYPERSENSITIVITY
     Dosage: UNK UNK, QD
     Dates: start: 20150112
  6. VITAMIN D [Concomitant]
     Active Substance: CHOLECALCIFEROL
     Indication: HYPOVITAMINOSIS
     Dosage: UNK UNK, QD
     Dates: start: 20140728

REACTIONS (20)
  - Peripheral swelling [Not Recovered/Not Resolved]
  - Blood urine present [Not Recovered/Not Resolved]
  - Vasodilatation [Recovering/Resolving]
  - Heart rate irregular [Recovering/Resolving]
  - Pain of skin [Not Recovered/Not Resolved]
  - Swelling [Recovering/Resolving]
  - Paraesthesia [None]
  - Neuralgia [Recovering/Resolving]
  - Swelling face [Not Recovered/Not Resolved]
  - Paraesthesia [Not Recovered/Not Resolved]
  - Rash [Not Recovered/Not Resolved]
  - Vascular pain [Not Recovered/Not Resolved]
  - Abdominal distension [Not Recovered/Not Resolved]
  - Haematochezia [Not Recovered/Not Resolved]
  - Haemoptysis [Not Recovered/Not Resolved]
  - Presyncope [Not Recovered/Not Resolved]
  - Vein discolouration [Recovering/Resolving]
  - Burning sensation [Not Recovered/Not Resolved]
  - Blood pressure increased [Not Recovered/Not Resolved]
  - Dyspnoea [Not Recovered/Not Resolved]

NARRATIVE: CASE EVENT DATE: 20140728
